FAERS Safety Report 12136600 (Version 1)
Quarter: 2016Q1

REPORT INFORMATION
  Report Type: Spontaneous
  Country: US (occurrence: None)
  Receive Date: 20160301
  Receipt Date: 20160301
  Transmission Date: 20160526
  Serious: No
  Sender: FDA-Public Use
  Company Number: None

PATIENT
  Sex: Female

DRUGS (4)
  1. PRAVASTATIN [Concomitant]
     Active Substance: PRAVASTATIN\PRAVASTATIN SODIUM
  2. TOUJEO [Concomitant]
     Active Substance: INSULIN GLARGINE
  3. LISINOPRIL. [Suspect]
     Active Substance: LISINOPRIL
  4. GLIMIPERIDE [Concomitant]
     Active Substance: GLIMEPIRIDE

REACTIONS (3)
  - Nasopharyngitis [None]
  - Drug dose omission [None]
  - Memory impairment [None]
